FAERS Safety Report 6597933-7 (Version None)
Quarter: 2010Q1

REPORT INFORMATION
  Report Type: 
  Country: None (occurrence: None)
  Receive Date: 20100223
  Receipt Date: 20100217
  Transmission Date: 20100710
  Serious: Yes (Hospitalization)
  Sender: FDA-Public Use
  Company Number: US-AMGEN-KDL393747

PATIENT
  Sex: Male

DRUGS (9)
  1. PROCRIT [Suspect]
     Indication: DRUG USE FOR UNKNOWN INDICATION
  2. ARANESP [Suspect]
     Indication: RENAL TRANSPLANT
     Dates: end: 20100216
  3. CYCLOSPORINE [Concomitant]
  4. TOPROL-XL [Concomitant]
  5. NORVASC [Concomitant]
  6. MYFORTIC [Concomitant]
  7. PREDNISONE [Concomitant]
  8. BACTRIM [Concomitant]
  9. BLOOD CELLS, PACKED HUMAN [Concomitant]

REACTIONS (1)
  - HAEMOGLOBIN DECREASED [None]
